FAERS Safety Report 8507950-5 (Version None)
Quarter: 2012Q3

REPORT INFORMATION
  Report Type: 
  Country: None (occurrence: None)
  Receive Date: 20120709
  Receipt Date: 20120709
  Transmission Date: 20120928
  Serious: No
  Sender: FDA-Public Use
  Company Number: None

PATIENT
  Age: 70 Year
  Sex: Female
  Weight: 47.6277 kg

DRUGS (1)
  1. CORTISONE ACETATE [Suspect]
     Indication: ARTHRALGIA
     Dosage: ONE TABLET EVERY 12 HOURS PO
     Route: 048
     Dates: start: 20120519, end: 20120707

REACTIONS (1)
  - NO ADVERSE EVENT [None]
